FAERS Safety Report 15125365 (Version 1)
Quarter: 2018Q3

REPORT INFORMATION
  Report Type: Spontaneous
  Country: BE (occurrence: BE)
  Receive Date: 20180710
  Receipt Date: 20180710
  Transmission Date: 20181010
  Serious: Yes (Disabling, Other)
  Sender: FDA-Public Use
  Company Number: BE-BAYER-2017-198905

PATIENT
  Age: 38 Year
  Sex: Female

DRUGS (1)
  1. MIRENA [Suspect]
     Active Substance: LEVONORGESTREL
     Indication: CONTRACEPTION
     Dosage: 20 MCG/24HR, CONT
     Route: 015
     Dates: start: 20141008, end: 20170926

REACTIONS (21)
  - Alopecia [Unknown]
  - Vertigo [Unknown]
  - Hair growth abnormal [Unknown]
  - Headache [Unknown]
  - Anxiety [Unknown]
  - Tachycardia [Unknown]
  - Negative thoughts [None]
  - Insomnia [Unknown]
  - Depression [Unknown]
  - Anger [Unknown]
  - Fluid retention [Unknown]
  - Vitiligo [Unknown]
  - Hot flush [Unknown]
  - Dizziness [None]
  - Weight increased [Unknown]
  - Hypertrichosis [None]
  - Breast pain [Unknown]
  - Dyspnoea [Unknown]
  - Fatigue [Unknown]
  - Presyncope [Unknown]
  - Tendonitis [Unknown]

NARRATIVE: CASE EVENT DATE: 20141008
